FAERS Safety Report 4771653-3 (Version None)
Quarter: 2005Q3

REPORT INFORMATION
  Report Type: 
  Country: None (occurrence: None)
  Receive Date: 20050915
  Receipt Date: 20050831
  Transmission Date: 20060218
  Serious: Yes (Disabling)
  Sender: FDA-Public Use
  Company Number: 2005S1005008

PATIENT
  Age: 54 Year
  Sex: Female
  Weight: 81.6475 kg

DRUGS (2)
  1. FENTANYL [Suspect]
     Indication: ARTHRALGIA
     Dosage: 100 MCG/HR; QOD; TDER
     Route: 062
     Dates: start: 20050318, end: 20050324
  2. FENTANYL [Suspect]
     Indication: BACK PAIN
     Dosage: 100 MCG/HR; QOD; TDER
     Route: 062
     Dates: start: 20050318, end: 20050324

REACTIONS (2)
  - DRUG INEFFECTIVE [None]
  - HEADACHE [None]
